FAERS Safety Report 23276925 (Version 1)
Quarter: 2023Q4

REPORT INFORMATION
  Report Type: Spontaneous
  Country: CN (occurrence: None)
  Receive Date: 20231208
  Receipt Date: 20231208
  Transmission Date: 20240109
  Serious: Yes (Other)
  Sender: FDA-Public Use
  Company Number: 2023A276365

PATIENT
  Age: 66 Year
  Sex: Male

DRUGS (5)
  1. DURVALUMAB [Suspect]
     Active Substance: DURVALUMAB
     Indication: Neoplasm
     Route: 041
     Dates: start: 20230808, end: 20230816
  2. DURVALUMAB [Suspect]
     Active Substance: DURVALUMAB
     Indication: Neoplasm
     Route: 041
     Dates: start: 20230928, end: 20231006
  3. GEMCITABINE [Concomitant]
     Active Substance: GEMCITABINE
     Dates: start: 20230808
  4. GEMCITABINE [Concomitant]
     Active Substance: GEMCITABINE
     Dates: start: 20230908
  5. GEMCITABINE [Concomitant]
     Active Substance: GEMCITABINE
     Dates: start: 20230928

REACTIONS (2)
  - Psoriasis [Unknown]
  - Immune-mediated dermatitis [Recovering/Resolving]

NARRATIVE: CASE EVENT DATE: 20230928
